FAERS Safety Report 21372577 (Version 1)
Quarter: 2022Q3

REPORT INFORMATION
  Report Type: Spontaneous
  Country: US (occurrence: US)
  Receive Date: 20220924
  Receipt Date: 20220924
  Transmission Date: 20221027
  Serious: No
  Sender: FDA-Public Use
  Company Number: US-009507513-2208USA011866

PATIENT
  Age: 35 Year
  Sex: Female

DRUGS (1)
  1. BRIDION [Suspect]
     Active Substance: SUGAMMADEX

REACTIONS (2)
  - Maternal exposure during breast feeding [Unknown]
  - No adverse event [Unknown]

NARRATIVE: CASE EVENT DATE: 20220830
